FAERS Safety Report 12536430 (Version 1)
Quarter: 2016Q3

REPORT INFORMATION
  Report Type: Spontaneous
  Country: DE (occurrence: DE)
  Receive Date: 20160707
  Receipt Date: 20160707
  Transmission Date: 20161109
  Serious: Yes (Hospitalization)
  Sender: FDA-Public Use
  Company Number: DE-ASTRAZENECA-2016SE72307

PATIENT
  Age: 54 Year
  Sex: Female

DRUGS (7)
  1. NICOTINE. [Concomitant]
     Active Substance: NICOTINE
  2. ASPIRIN. [Concomitant]
     Active Substance: ASPIRIN
     Dosage: 300.0MG UNKNOWN
  3. TICAGRELOR [Suspect]
     Active Substance: TICAGRELOR
     Dosage: 2.0DF UNKNOWN
     Route: 048
  4. ACE INHIBITOR [Concomitant]
     Active Substance: UNSPECIFIED INGREDIENT
  5. STATIN [Concomitant]
     Active Substance: UNSPECIFIED INGREDIENT
  6. TICAGRELOR [Suspect]
     Active Substance: TICAGRELOR
     Dosage: 180.0MG UNKNOWN
     Route: 048
  7. ASPIRIN. [Concomitant]
     Active Substance: ASPIRIN
     Dosage: 100.0MG UNKNOWN

REACTIONS (1)
  - Acute myocardial infarction [Unknown]
